FAERS Safety Report 14329717 (Version 5)
Quarter: 2018Q2

REPORT INFORMATION
  Report Type: Report from Study
  Country: BR (occurrence: BR)
  Receive Date: 20171227
  Receipt Date: 20180523
  Transmission Date: 20180711
  Serious: Yes (Other)
  Sender: FDA-Public Use
  Company Number: PHHY2017BR190219

PATIENT
  Sex: Male
  Weight: 55 kg

DRUGS (4)
  1. AFINITOR [Suspect]
     Active Substance: EVEROLIMUS
     Indication: PANCREATIC CARCINOMA
     Dosage: 110 MG, QD
     Route: 048
  2. AFINITOR [Suspect]
     Active Substance: EVEROLIMUS
     Dosage: 10 MG, QD
     Route: 048
     Dates: start: 20171015
  3. SANDOSTATIN LAR DEPOT [Suspect]
     Active Substance: OCTREOTIDE ACETATE
     Indication: NEUROENDOCRINE TUMOUR
     Dosage: 30 MG, QMO
     Route: 030
     Dates: end: 2017
  4. AFINITOR [Suspect]
     Active Substance: EVEROLIMUS
     Indication: NEUROENDOCRINE TUMOUR
     Dosage: 1 DF, QD
     Route: 048

REACTIONS (11)
  - Lagophthalmos [Recovering/Resolving]
  - Skin cancer [Unknown]
  - Ophthalmoplegia [Recovering/Resolving]
  - Aphthous ulcer [Recovered/Resolved]
  - Dizziness [Recovering/Resolving]
  - Dysentery [Unknown]
  - Pancreatic carcinoma [Unknown]
  - Hepatic cancer [Unknown]
  - Eye disorder [Unknown]
  - Labyrinthitis [Recovering/Resolving]
  - Facial paralysis [Recovered/Resolved with Sequelae]
